FAERS Safety Report 17134289 (Version 1)
Quarter: 2019Q4

REPORT INFORMATION
  Report Type: Spontaneous
  Country: US (occurrence: US)
  Receive Date: 20191210
  Receipt Date: 20191210
  Transmission Date: 20200122
  Serious: Yes (Hospitalization)
  Sender: FDA-Public Use
  Company Number: US-MYLANLABS-2019M1120178

PATIENT
  Age: 28 Year
  Sex: Female

DRUGS (11)
  1. DEXMEDETOMIDINE. [Suspect]
     Active Substance: DEXMEDETOMIDINE
     Dosage: INFUSION THROUGH SUBCUTANEOUS PORT; ON DAY 2 (DOSE INCREASED BY 0.1..
     Route: 042
  2. GABAPENTIN. [Suspect]
     Active Substance: GABAPENTIN
     Indication: PRODUCT USED FOR UNKNOWN INDICATION
     Route: 065
  3. MORPHINE [Concomitant]
     Active Substance: MORPHINE
     Indication: CANCER PAIN
     Dosage: PATIENT-CONTROLLED ANALGESIA (PCA) BASAL-BOLUS INFUSION
     Route: 042
  4. KETAMINE [Suspect]
     Active Substance: KETAMINE
     Indication: CANCER PAIN
     Route: 042
  5. DEXMEDETOMIDINE. [Suspect]
     Active Substance: DEXMEDETOMIDINE
     Indication: CANCER PAIN
     Dosage: INFUSION THROUGH SUBCUTANEOUS PORT; ON DAY 1
     Route: 042
  6. LIDOCAINE. [Suspect]
     Active Substance: LIDOCAINE
     Indication: PRODUCT USED FOR UNKNOWN INDICATION
     Route: 061
  7. LIDOCAINE. [Suspect]
     Active Substance: LIDOCAINE
     Indication: CANCER PAIN
     Dosage: RAPID AND CONTINUOUS LIDOCAINE INFUSIONS
     Route: 042
  8. METHADONE [Concomitant]
     Active Substance: METHADONE HYDROCHLORIDE
     Indication: CANCER PAIN
     Route: 065
  9. DEXAMETHASONE. [Concomitant]
     Active Substance: DEXAMETHASONE
     Indication: CANCER PAIN
     Route: 065
  10. KETOROLAC [Concomitant]
     Active Substance: KETOROLAC TROMETHAMINE
     Indication: CANCER PAIN
     Dosage: AS NEEDED
     Route: 065
  11. HYDROMORPHONE [Concomitant]
     Active Substance: HYDROMORPHONE
     Indication: CANCER PAIN
     Dosage: PATIENT-CONTROLLED ANALGESIA (PCA) BASAL-BOLUS INFUSION
     Route: 042

REACTIONS (9)
  - Drug ineffective [Unknown]
  - Confusional state [Recovered/Resolved]
  - Diplopia [Unknown]
  - Delirium [Recovered/Resolved]
  - Dissociative disorder [Unknown]
  - Blood pressure systolic decreased [Unknown]
  - Anxiety [Unknown]
  - Adverse drug reaction [Unknown]
  - Nightmare [Unknown]
